FAERS Safety Report 18591246 (Version 2)
Quarter: 2020Q4

REPORT INFORMATION
  Report Type: Spontaneous
  Country: US (occurrence: US)
  Receive Date: 20201208
  Receipt Date: 20201230
  Transmission Date: 20210114
  Serious: Yes (Other)
  Sender: FDA-Public Use
  Company Number: US-ROCHE-2724839

PATIENT
  Age: 60 Year
  Sex: Female
  Weight: 70.37 kg

DRUGS (8)
  1. COUMADIN [Concomitant]
     Active Substance: WARFARIN SODIUM
     Indication: POLYCYTHAEMIA VERA
     Dosage: EVERY MON + FRI
     Route: 048
     Dates: start: 202011
  2. COUMADIN [Concomitant]
     Active Substance: WARFARIN SODIUM
     Dosage: TUES, WED, THURS, SAT, SUN
     Dates: start: 202011
  3. COUMADIN [Concomitant]
     Active Substance: WARFARIN SODIUM
     Route: 048
     Dates: start: 201704
  4. PEGASYS [Suspect]
     Active Substance: PEGINTERFERON ALFA-2A
     Indication: POLYCYTHAEMIA VERA
     Route: 058
     Dates: start: 201704
  5. LUTEIN [Concomitant]
     Active Substance: LUTEIN
     Route: 048
     Dates: start: 202006
  6. PEGASYS [Suspect]
     Active Substance: PEGINTERFERON ALFA-2A
     Dosage: 2 TIMES A MONTH ;THERAPY ONGOING STATUS: YES
     Route: 058
     Dates: start: 2020
  7. FLU SHOT [Concomitant]
     Active Substance: INFLUENZA VIRUS VACCINE
     Dates: start: 201909, end: 201909
  8. BABY ASPIRIN [Concomitant]
     Active Substance: ASPIRIN
     Indication: POLYCYTHAEMIA VERA
     Route: 048

REACTIONS (14)
  - Muscle spasms [Not Recovered/Not Resolved]
  - Fall [Unknown]
  - Hand fracture [Not Recovered/Not Resolved]
  - Pain [Not Recovered/Not Resolved]
  - Off label use [Unknown]
  - Visual impairment [Recovering/Resolving]
  - Amnesia [Unknown]
  - Arthritis [Not Recovered/Not Resolved]
  - Cataract [Not Recovered/Not Resolved]
  - Arthralgia [Not Recovered/Not Resolved]
  - Blood count abnormal [Unknown]
  - Myalgia [Not Recovered/Not Resolved]
  - Intentional product use issue [Unknown]
  - Insomnia [Not Recovered/Not Resolved]

NARRATIVE: CASE EVENT DATE: 201910
